FAERS Safety Report 5154178-5 (Version None)
Quarter: 2006Q4

REPORT INFORMATION
  Report Type: 
  Country: None (occurrence: None)
  Receive Date: 20061120
  Receipt Date: 20061113
  Transmission Date: 20070319
  Serious: Yes (Hospitalization)
  Sender: FDA-Public Use
  Company Number: 2006UW23738

PATIENT
  Age: 32 Year
  Sex: Male
  Weight: 106.6 kg

DRUGS (3)
  1. SEROQUEL [Suspect]
     Indication: BIPOLAR DISORDER
     Route: 048
     Dates: start: 20060101
  2. LITHIUM CARBONATE [Concomitant]
  3. COUMADIN [Concomitant]

REACTIONS (1)
  - PULMONARY THROMBOSIS [None]
